FAERS Safety Report 4627524-6 (Version None)
Quarter: 2005Q2

REPORT INFORMATION
  Report Type: 
  Country: None (occurrence: None)
  Receive Date: 20050405
  Receipt Date: 20050322
  Transmission Date: 20051028
  Serious: Yes (Death, Hospitalization)
  Sender: FDA-Public Use
  Company Number: HQWYE333024MAR05

PATIENT
  Age: 19 Year
  Sex: Male

DRUGS (3)
  1. EFFEXOR XR [Suspect]
     Dosage: 3 G (OVERDOSE AMOUNT); ORAL
     Route: 048
  2. RISPERDAL [Suspect]
     Dosage: 60 MG (OVERDOSE AMOUNT); ORAL
     Route: 048
  3. VALPROIC ACID [Suspect]
     Dosage: 20 G (OVERDOSE AMOUNT); ORAL
     Route: 048

REACTIONS (7)
  - AMMONIA INCREASED [None]
  - BLOOD PRESSURE INCREASED [None]
  - BRAIN OEDEMA [None]
  - CEREBRAL CIRCULATORY FAILURE [None]
  - COMPLETED SUICIDE [None]
  - INTENTIONAL MISUSE [None]
  - TACHYCARDIA [None]
